FAERS Safety Report 9073302 (Version 1)
Quarter: 2013Q1

REPORT INFORMATION
  Report Type: Report from Study
  Country: US (occurrence: US)
  Receive Date: 20130129
  Receipt Date: 20130129
  Transmission Date: 20140127
  Serious: No
  Sender: FDA-Public Use
  Company Number: US-ABBOTT-12P-163-0943106-00

PATIENT
  Age: 55 Year
  Sex: Female

DRUGS (13)
  1. HUMIRA 40 MG/0.8 ML PEN [Suspect]
     Indication: CROHN^S DISEASE
     Dates: start: 20120315
  2. PREDNISONE [Suspect]
     Indication: CROHN^S DISEASE
  3. PREDNISONE [Suspect]
     Dates: start: 20120417
  4. PREDNISONE [Suspect]
     Dates: start: 20120426
  5. PREDNISONE [Suspect]
     Dates: start: 20120504
  6. PREDNISONE [Suspect]
  7. MERCAPTOPURINE [Concomitant]
     Indication: PRODUCT USED FOR UNKNOWN INDICATION
  8. ZANTAC [Concomitant]
     Indication: PRODUCT USED FOR UNKNOWN INDICATION
  9. ELAVIL [Concomitant]
     Indication: HEADACHE
  10. ZOCOR [Concomitant]
     Indication: PRODUCT USED FOR UNKNOWN INDICATION
  11. DIOVAN HCT [Concomitant]
     Indication: PRODUCT USED FOR UNKNOWN INDICATION
     Dosage: 320/25MG - HALF TAB DAILY
  12. INDERAL [Concomitant]
     Indication: PALPITATIONS
  13. INDERAL [Concomitant]
     Indication: CROHN^S DISEASE

REACTIONS (7)
  - Haematochezia [Recovered/Resolved]
  - Frequent bowel movements [Recovered/Resolved]
  - Abdominal pain [Recovered/Resolved]
  - Injection site pain [Unknown]
  - Wrong technique in drug usage process [Unknown]
  - Unevaluable event [Unknown]
  - Incorrect dose administered [Unknown]
